FAERS Safety Report 4392862-1 (Version None)
Quarter: 2004Q3

REPORT INFORMATION
  Report Type: 
  Country: None (occurrence: None)
  Receive Date: 20040702
  Receipt Date: 20040618
  Transmission Date: 20050211
  Serious: Yes (Hospitalization)
  Sender: FDA-Public Use
  Company Number: RENA-11054

PATIENT
  Age: 68 Year
  Sex: Male

DRUGS (4)
  1. RENAGEL [Suspect]
     Indication: HYPERPHOSPHATAEMIA
     Dosage: 1 G TID PO
     Route: 048
     Dates: start: 20031216
  2. CALCIUM CARBONATE [Concomitant]
  3. DIGOXIN [Concomitant]
  4. ALOSENN [Concomitant]

REACTIONS (5)
  - DIVERTICULITIS [None]
  - FAECES HARD [None]
  - HAEMODIALYSIS [None]
  - LARGE INTESTINE PERFORATION [None]
  - PROCTALGIA [None]
